FAERS Safety Report 5175392-9 (Version None)
Quarter: 2006Q4

REPORT INFORMATION
  Report Type: 
  Country: None (occurrence: None)
  Receive Date: 20061212
  Receipt Date: 20061212
  Transmission Date: 20070319
  Serious: Yes (Hospitalization)
  Sender: FDA-Public Use
  Company Number: None

PATIENT
  Sex: Female
  Weight: 119 kg

DRUGS (3)
  1. ELOXATIN [Suspect]
     Dosage: 16 MG
     Dates: end: 20061205
  2. LEUCOVORIN CALCIUM [Suspect]
     Dosage: 145 MG
     Dates: end: 20061205
  3. BEVACIZUMAB (RHUMAB VEGF) [Suspect]
     Dosage: 595 MG
     Dates: end: 20061205

REACTIONS (2)
  - HYPERSENSITIVITY [None]
  - INFUSION RELATED REACTION [None]
